FAERS Safety Report 25049993 (Version 1)
Quarter: 2025Q1

REPORT INFORMATION
  Report Type: Spontaneous
  Country: US (occurrence: None)
  Receive Date: 20250307
  Receipt Date: 20250307
  Transmission Date: 20250408
  Serious: Yes (Hospitalization)
  Sender: FDA-CTU
  Company Number: None

PATIENT
  Age: 67 Year
  Sex: Male
  Weight: 80.3 kg

DRUGS (4)
  1. FLUOROURACIL [Suspect]
     Active Substance: FLUOROURACIL
     Dates: end: 20241009
  2. CAMPTOSAR [Suspect]
     Active Substance: IRINOTECAN HYDROCHLORIDE
     Dates: end: 20241007
  3. LEUCOVORIN CALCIUM [Suspect]
     Active Substance: LEUCOVORIN CALCIUM
     Dates: end: 20241007
  4. ELOXATIN [Suspect]
     Active Substance: OXALIPLATIN
     Dates: end: 20241007

REACTIONS (5)
  - Hypotension [None]
  - Atrial fibrillation [None]
  - Blood pressure orthostatic [None]
  - Fatigue [None]
  - Presyncope [None]

NARRATIVE: CASE EVENT DATE: 20241014
